FAERS Safety Report 15519425 (Version 1)
Quarter: 2018Q4

REPORT INFORMATION
  Report Type: Report from Study
  Country: US (occurrence: US)
  Receive Date: 20181017
  Receipt Date: 20181017
  Transmission Date: 20190205
  Serious: No
  Sender: FDA-Public Use
  Company Number: US-AMGEN-USASL2018103825

PATIENT
  Age: 72 Year
  Sex: Male

DRUGS (1)
  1. REPATHA [Suspect]
     Active Substance: EVOLOCUMAB
     Indication: HYPERLIPIDAEMIA
     Dosage: 140 MG, Q2WK
     Route: 058

REACTIONS (6)
  - Paranasal sinus hypersecretion [Unknown]
  - Productive cough [Unknown]
  - Abdominal pain upper [Unknown]
  - Headache [Unknown]
  - Influenza like illness [Unknown]
  - Injection site bruising [Recovered/Resolved]
